FAERS Safety Report 6050423-2 (Version None)
Quarter: 2009Q1

REPORT INFORMATION
  Report Type: 
  Country: None (occurrence: None)
  Receive Date: 20090121
  Receipt Date: 20090106
  Transmission Date: 20090719
  Serious: Yes (Other)
  Sender: FDA-Public Use
  Company Number: 138193

PATIENT
  Age: 16 Year
  Sex: Male

DRUGS (5)
  1. METHOTREXATE [Suspect]
     Indication: PSORIASIS
     Dosage: 15 MG, WEEKLY, INTRAMUSCULAR
     Route: 030
     Dates: start: 20030520
  2. METHOTREXATE [Suspect]
     Indication: PSORIASIS
     Dosage: 15 MG, WEEKLY, INTRAMUSCULAR
     Route: 030
     Dates: start: 20030528
  3. METHOTREXATE [Suspect]
     Indication: PSORIASIS
     Dosage: 15 MG, WEEKLY, INTRAMUSCULAR
     Route: 030
     Dates: start: 20030704
  4. AMEVIVE [Suspect]
     Indication: PSORIASIS
     Dosage: 15 MG, WEEKLY, INTRAMUSCULAR
     Dates: start: 20030520
  5. METHYLPHENIDATE HCL [Concomitant]

REACTIONS (2)
  - CD4 LYMPHOCYTES DECREASED [None]
  - T-LYMPHOCYTE COUNT DECREASED [None]
